FAERS Safety Report 18519900 (Version 3)
Quarter: 2021Q1

REPORT INFORMATION
  Report Type: Spontaneous
  Country: CA (occurrence: CA)
  Receive Date: 20201119
  Receipt Date: 20210113
  Transmission Date: 20210419
  Serious: Yes (Other)
  Sender: FDA-Public Use
  Company Number: CA-CELLTRION INC.-2020CA032040

PATIENT

DRUGS (2)
  1. INFLECTRA [Suspect]
     Active Substance: INFLIXIMAB-DYYB
     Dosage: 600 MG (AT 0, 2, 6 WEEKS, THEN EVERY 8 WEEKS)
     Route: 042
     Dates: start: 20201117
  2. INFLECTRA [Suspect]
     Active Substance: INFLIXIMAB-DYYB
     Indication: RHEUMATOID ARTHRITIS
     Dosage: 600 MG (AT 0, 2, 6 WEEKS, THEN EVERY 8 WEEKS)
     Route: 042
     Dates: start: 20201103, end: 20201117

REACTIONS (12)
  - Pain [Unknown]
  - Psoriasis [Unknown]
  - Drug hypersensitivity [Unknown]
  - Dyspnoea [Recovering/Resolving]
  - Erythema [Recovering/Resolving]
  - Rash [Recovering/Resolving]
  - Bone pain [Unknown]
  - Paralysis [Unknown]
  - Musculoskeletal stiffness [Unknown]
  - Hot flush [Recovering/Resolving]
  - Influenza like illness [Recovering/Resolving]
  - Cough [Recovering/Resolving]

NARRATIVE: CASE EVENT DATE: 202011
